FAERS Safety Report 6827312-6 (Version None)
Quarter: 2010Q3

REPORT INFORMATION
  Report Type: 
  Country: None (occurrence: None)
  Receive Date: 20100709
  Receipt Date: 20100702
  Transmission Date: 20110219
  Serious: Yes (Life-Threatening, Hospitalization, Other)
  Sender: FDA-Public Use
  Company Number: ZA-ABBOTT-10P-143-0631873-00

PATIENT
  Sex: Male
  Weight: 50 kg

DRUGS (2)
  1. HUMIRA [Suspect]
     Indication: CROHN'S DISEASE
     Route: 058
     Dates: start: 20081215, end: 20081215
  2. HUMIRA [Suspect]
     Route: 058
     Dates: end: 20100305

REACTIONS (2)
  - LOBAR PNEUMONIA [None]
  - TUBERCULOSIS [None]
